FAERS Safety Report 11864687 (Version 9)
Quarter: 2016Q2

REPORT INFORMATION
  Report Type: Spontaneous
  Country: US (occurrence: US)
  Receive Date: 20151223
  Receipt Date: 20160519
  Transmission Date: 20160815
  Serious: Yes (Other)
  Sender: FDA-Public Use
  Company Number: US-ABBVIE-15K-163-1522026-00

PATIENT
  Age: 56 Year
  Sex: Male

DRUGS (1)
  1. CREON [Suspect]
     Active Substance: PANCRELIPASE AMYLASE\PANCRELIPASE LIPASE\PANCRELIPASE PROTEASE
     Indication: PRODUCT USED FOR UNKNOWN INDICATION
     Route: 065

REACTIONS (20)
  - Anal incontinence [Recovered/Resolved]
  - Abdominal adhesions [Unknown]
  - Dyspepsia [Unknown]
  - Duodenal ulcer [Recovered/Resolved]
  - Abdominal pain upper [Not Recovered/Not Resolved]
  - Haemorrhage [Recovered/Resolved]
  - Vomiting [Unknown]
  - Neuropathy peripheral [Unknown]
  - Vitamin D deficiency [Unknown]
  - Food intolerance [Unknown]
  - Scar pain [Recovered/Resolved]
  - Diabetes mellitus [Unknown]
  - Fatigue [Unknown]
  - Surgery [Recovered/Resolved]
  - Vitamin B12 deficiency [Not Recovered/Not Resolved]
  - Abdominal pain [Recovered/Resolved]
  - Intentional product use issue [Unknown]
  - Gastric ulcer [Recovered/Resolved]
  - Restlessness [Unknown]
  - Feeling abnormal [Unknown]

NARRATIVE: CASE EVENT DATE: 2000
